FAERS Safety Report 4830049-6 (Version None)
Quarter: 2005Q4

REPORT INFORMATION
  Report Type: 
  Country: None (occurrence: None)
  Receive Date: 20051115
  Receipt Date: 20051115
  Transmission Date: 20060501
  Serious: Yes (Other)
  Sender: FDA-Public Use
  Company Number: None

PATIENT
  Sex: Male
  Weight: 81.6475 kg

DRUGS (1)
  1. TRILEPTAL [Suspect]
     Indication: BIPOLAR DISORDER
     Dosage: 150 MG BID PO
     Route: 048
     Dates: start: 20051110, end: 20051112

REACTIONS (3)
  - PRURITUS [None]
  - SWOLLEN TONGUE [None]
  - URTICARIA [None]
